FAERS Safety Report 19210102 (Version 2)
Quarter: 2025Q3

REPORT INFORMATION
  Report Type: Spontaneous
  Country: EU (occurrence: EU)
  Receive Date: 20210504
  Receipt Date: 20250802
  Transmission Date: 20251021
  Serious: Yes (Hospitalization)
  Sender: AUROBINDO
  Company Number: EU-JNJFOC-20210425379

PATIENT
  Age: 38 Year
  Sex: Male

DRUGS (6)
  1. LORAZEPAM [Suspect]
     Active Substance: LORAZEPAM
     Indication: Disturbance in social behaviour
     Dosage: 2.5 MILLIGRAM, ONCE A DAY
     Route: 065
  2. VALPROIC ACID [Suspect]
     Active Substance: VALPROIC ACID
     Indication: Disturbance in social behaviour
     Dosage: 4 MILLIGRAM, ONCE A DAY
     Route: 065
  3. VALPROIC ACID [Suspect]
     Active Substance: VALPROIC ACID
     Dosage: 500 MILLIGRAM, TWO TIMES A DAY
     Route: 065
  4. CLONAZEPAM [Suspect]
     Active Substance: CLONAZEPAM
     Indication: Disturbance in social behaviour
     Dosage: 1 MILLIGRAM, ONCE A DAY
     Route: 065
  5. CLONAZEPAM [Suspect]
     Active Substance: CLONAZEPAM
     Dosage: 4 MILLIGRAM, ONCE A DAY
     Route: 065
  6. RISPERDAL [Suspect]
     Active Substance: RISPERIDONE
     Indication: Disturbance in social behaviour
     Dosage: 4 MILLIGRAM, ONCE A DAY
     Route: 065

REACTIONS (1)
  - Polydipsia [Recovered/Resolved]
